FAERS Safety Report 6691815-8 (Version None)
Quarter: 2010Q2

REPORT INFORMATION
  Report Type: 
  Country: None (occurrence: None)
  Receive Date: 20100422
  Receipt Date: 20090528
  Transmission Date: 20101027
  Serious: No
  Sender: FDA-Public Use
  Company Number: US-ASTRAZENECA-2009UW13859

PATIENT
  Age: 85 Year
  Sex: Female
  Weight: 47.6 kg

DRUGS (3)
  1. TOPROL-XL [Suspect]
     Indication: HYPERTENSION
     Route: 048
     Dates: start: 20010101
  2. LISINOPRIL [Suspect]
     Indication: HYPERTENSION
     Route: 048
     Dates: start: 20050801
  3. METOPROLOL SUCCINATE [Suspect]
     Dates: start: 20030101

REACTIONS (1)
  - RASH PRURITIC [None]
